FAERS Safety Report 4283792-4 (Version None)
Quarter: 2004Q1

REPORT INFORMATION
  Report Type: 
  Country: None (occurrence: None)
  Receive Date: 20040115
  Receipt Date: 20030606
  Transmission Date: 20041129
  Serious: Yes (Other)
  Sender: FDA-Public Use
  Company Number: NSADSS2003018824

PATIENT
  Age: 66 Year
  Sex: Female
  Weight: 56.246 kg

DRUGS (2)
  1. DOXIL [Suspect]
     Indication: OVARIAN CANCER
     Dosage: 60 MG, 1 IN 4 WEEK, INTRAVENOUS
     Route: 042
     Dates: start: 20030127, end: 20030317
  2. ZOFRAN [Concomitant]

REACTIONS (1)
  - PALMAR-PLANTAR ERYTHRODYSAESTHESIA SYNDROME [None]
